FAERS Safety Report 14124441 (Version 1)
Quarter: 2017Q4

REPORT INFORMATION
  Report Type: Spontaneous
  Country: US (occurrence: US)
  Receive Date: 20171025
  Receipt Date: 20171025
  Transmission Date: 20180321
  Serious: No
  Sender: FDA-Public Use
  Company Number: US-PFIZER INC-2017456565

PATIENT
  Age: 22 Year
  Sex: Female
  Weight: 46.27 kg

DRUGS (1)
  1. ADVIL [Suspect]
     Active Substance: IBUPROFEN

REACTIONS (3)
  - Accidental exposure to product [Unknown]
  - Eye irritation [Unknown]
  - Wrong technique in product usage process [Unknown]
